FAERS Safety Report 4383008-4 (Version None)
Quarter: 2004Q2

REPORT INFORMATION
  Report Type: 
  Country: None (occurrence: None)
  Receive Date: 20040527
  Receipt Date: 20031008
  Transmission Date: 20050107
  Serious: Yes (Other)
  Sender: FDA-Public Use
  Company Number: PHEH2003US09229

PATIENT
  Sex: Male

DRUGS (3)
  1. VOLTAREN OPHTHALMIC (NVO) (DICLOFENAC SODIUM) EYE DROPS NOS,1.0 MG [Suspect]
     Dosage: ONCE/SINGLE, TOPICAL OPHTH.
     Dates: start: 20030729, end: 20030729
  2. XALATAN [Suspect]
  3. RESTAS (FLUTOPRAZEPAM) [Suspect]

REACTIONS (3)
  - CORNEAL DISORDER [None]
  - HALO VISION [None]
  - VISUAL DISTURBANCE [None]
